FAERS Safety Report 12195659 (Version 1)
Quarter: 2016Q1

REPORT INFORMATION
  Report Type: Spontaneous
  Country: SG (occurrence: SG)
  Receive Date: 20160321
  Receipt Date: 20160321
  Transmission Date: 20160526
  Serious: Yes (Other)
  Sender: FDA-Public Use
  Company Number: SG-FRESENIUS KABI-FK201601414

PATIENT
  Sex: Male

DRUGS (13)
  1. ORPHENADRINE [Concomitant]
     Active Substance: ORPHENADRINE
  2. ZOLEDRONIC ACID (MANUFACTURER UNKNOWN) [Suspect]
     Active Substance: ZOLEDRONIC ACID
     Indication: METASTASES TO BONE
     Route: 042
  3. LACTULOSE. [Concomitant]
     Active Substance: LACTULOSE
  4. PARACETAMOL [Concomitant]
     Active Substance: ACETAMINOPHEN
  5. KETOPROFEN. [Concomitant]
     Active Substance: KETOPROFEN
  6. GABAPENTIN. [Concomitant]
     Active Substance: GABAPENTIN
  7. TRAMADOL. [Concomitant]
     Active Substance: TRAMADOL
  8. METOCLOPRAMIDE. [Concomitant]
     Active Substance: METOCLOPRAMIDE
  9. OMEPRAZOLE. [Concomitant]
     Active Substance: OMEPRAZOLE
  10. BICALUTAMIDE. [Concomitant]
     Active Substance: BICALUTAMIDE
  11. DOPAMINE [Concomitant]
     Active Substance: DOPAMINE\DOPAMINE HYDROCHLORIDE
  12. DEXAMETHASONE. [Concomitant]
     Active Substance: DEXAMETHASONE
  13. ANTIBIOTICS [Concomitant]
     Active Substance: UNSPECIFIED INGREDIENT

REACTIONS (1)
  - Fanconi syndrome [Not Recovered/Not Resolved]
